FAERS Safety Report 4909016-X (Version None)
Quarter: 2006Q1

REPORT INFORMATION
  Report Type: 
  Country: None (occurrence: None)
  Receive Date: 20060213
  Receipt Date: 20060124
  Transmission Date: 20060701
  Serious: Yes (Death)
  Sender: FDA-Public Use
  Company Number: AU-BOEHRINGER INGELHEIM PHARMACEUTICALS, INC.-2006-BP-00819AU

PATIENT
  Sex: Male
  Weight: 55 kg

DRUGS (1)
  1. MICARDIS [Suspect]
     Indication: CARDIAC FAILURE CONGESTIVE

REACTIONS (3)
  - ADVERSE EVENT [None]
  - DEATH [None]
  - DRUG INEFFECTIVE [None]
